FAERS Safety Report 9234876 (Version 3)
Quarter: 2013Q3

REPORT INFORMATION
  Report Type: Spontaneous
  Country: BR (occurrence: BR)
  Receive Date: 20130416
  Receipt Date: 20130912
  Transmission Date: 20140515
  Serious: Yes (Death)
  Sender: FDA-Public Use
  Company Number: BR-ABBOTT-13P-020-1076910-00

PATIENT
  Sex: Male

DRUGS (1)
  1. HUMIRA [Suspect]
     Indication: PRODUCT USED FOR UNKNOWN INDICATION
     Route: 058

REACTIONS (7)
  - Crohn^s disease [Fatal]
  - Pyrexia [Unknown]
  - Infection [Unknown]
  - Faecal incontinence [Unknown]
  - Diarrhoea [Unknown]
  - Hyperhidrosis [Unknown]
  - Hypophagia [Unknown]
